FAERS Safety Report 6848432-6 (Version None)
Quarter: 2010Q3

REPORT INFORMATION
  Report Type: 
  Country: None (occurrence: None)
  Receive Date: 20100716
  Receipt Date: 20100708
  Transmission Date: 20110219
  Serious: Yes (Hospitalization, Other)
  Sender: FDA-Public Use
  Company Number: US-MERCK-1004USA00575

PATIENT
  Age: 74 Year
  Sex: Female
  Weight: 66 kg

DRUGS (11)
  1. FOSAMAX [Suspect]
     Indication: OSTEOPOROSIS
     Route: 048
     Dates: start: 20040101, end: 20060101
  2. ZOMETA [Suspect]
     Indication: BONE LESION
     Route: 042
     Dates: start: 20061129
  3. PERCOCET [Concomitant]
     Indication: BACK PAIN
     Route: 065
  4. SYNTHROID [Concomitant]
     Indication: THYROID DISORDER
     Route: 048
  5. [THERAPY UNSPECIFIED] [Concomitant]
     Indication: RHEUMATOID ARTHRITIS
     Route: 065
  6. COUMADIN [Concomitant]
     Indication: THROMBOSIS PROPHYLAXIS
     Route: 065
  7. [THERAPY UNSPECIFIED] [Concomitant]
     Indication: HEART RATE
     Route: 065
  8. LISINOPRIL [Concomitant]
     Indication: BLOOD PRESSURE
     Route: 065
  9. LISINOPRIL [Concomitant]
     Indication: HEART RATE
     Route: 065
  10. LASIX [Concomitant]
     Indication: FLUID RETENTION
     Route: 065
  11. SEROQUEL [Concomitant]
     Indication: TREMOR
     Route: 065

REACTIONS (39)
  - ABDOMINAL PAIN [None]
  - ADNEXA UTERI MASS [None]
  - ANAEMIA [None]
  - ARTHRALGIA [None]
  - ARTHROPATHY [None]
  - ATRIAL FIBRILLATION [None]
  - ATRIAL FLUTTER [None]
  - BACK PAIN [None]
  - BLOOD PARATHYROID HORMONE INCREASED [None]
  - BONE LESION [None]
  - COMPRESSION FRACTURE [None]
  - DEEP VEIN THROMBOSIS [None]
  - DEHYDRATION [None]
  - DEPRESSION [None]
  - DIARRHOEA [None]
  - FALL [None]
  - GALLBLADDER DISORDER [None]
  - HERNIA [None]
  - HIP FRACTURE [None]
  - HYPERTENSION [None]
  - INTESTINAL FUNCTIONAL DISORDER [None]
  - KYPHOSIS [None]
  - LUMBAR VERTEBRAL FRACTURE [None]
  - MULTIPLE MYELOMA [None]
  - NAUSEA [None]
  - OSTEOARTHRITIS [None]
  - OSTEONECROSIS OF JAW [None]
  - PERIODONTAL DISEASE [None]
  - PROTHROMBIN LEVEL INCREASED [None]
  - PUBIS FRACTURE [None]
  - PULMONARY EMBOLISM [None]
  - SEPSIS [None]
  - SPINAL COMPRESSION FRACTURE [None]
  - STRESS URINARY INCONTINENCE [None]
  - SUICIDAL IDEATION [None]
  - TERATOMA BENIGN [None]
  - TREMOR [None]
  - ULCER [None]
  - VOMITING [None]
